FAERS Safety Report 19735051 (Version 1)
Quarter: 2021Q3

REPORT INFORMATION
  Report Type: Spontaneous
  Country: CN (occurrence: CN)
  Receive Date: 20210823
  Receipt Date: 20210823
  Transmission Date: 20211014
  Serious: Yes (Other)
  Sender: FDA-Public Use
  Company Number: CN-PRA-000169

PATIENT
  Age: 48 Year

DRUGS (2)
  1. METHYLPREDNISOLONE. [Suspect]
     Active Substance: METHYLPREDNISOLONE
     Indication: ASTROCYTOMA, LOW GRADE
     Dosage: EVERY 2 WEEKS
     Route: 048
  2. METHYLPREDNISOLONE. [Suspect]
     Active Substance: METHYLPREDNISOLONE
     Indication: ASTROCYTOMA, LOW GRADE
     Dosage: FOR 5 DAYS
     Route: 042

REACTIONS (4)
  - Product use in unapproved indication [Unknown]
  - Astrocytoma, low grade [Recovered/Resolved]
  - Suicidal ideation [Unknown]
  - Condition aggravated [Recovered/Resolved]
